FAERS Safety Report 23327396 (Version 2)
Quarter: 2023Q4

REPORT INFORMATION
  Report Type: Spontaneous
  Country: US (occurrence: US)
  Receive Date: 20231221
  Receipt Date: 20231224
  Transmission Date: 20240110
  Serious: Yes (Death)
  Sender: FDA-Public Use
  Company Number: US-FMCRTG-FMC-2312-001432

PATIENT
  Age: 67 Year
  Sex: Female
  Weight: 107 kg

DRUGS (1)
  1. DELFLEX [Suspect]
     Active Substance: CALCIUM CHLORIDE\DEXTROSE\MAGNESIUM CHLORIDE\SODIUM CHLORIDE\SODIUM LACTATE
     Indication: End stage renal disease
     Dosage: 2500 ML FOR 5 CYCLES WITH A LAST FILL OF 1000 ML AND ONE DAYTIME EXCHANGE OF ICODEXTRIN AT 1000 ML
     Route: 033
     Dates: start: 20220830

REACTIONS (1)
  - Myocardial infarction [Fatal]

NARRATIVE: CASE EVENT DATE: 20231204
